FAERS Safety Report 5313175-7 (Version None)
Quarter: 2007Q2

REPORT INFORMATION
  Report Type: 
  Country: None (occurrence: None)
  Receive Date: 20070424
  Receipt Date: 20070410
  Transmission Date: 20071010
  Serious: Yes (Life-Threatening, Hospitalization)
  Sender: FDA-Public Use
  Company Number: 2005-02146

PATIENT
  Age: 69 Year
  Sex: Female
  Weight: 70 kg

DRUGS (12)
  1. VELCADE [Suspect]
     Indication: MULTIPLE MYELOMA
     Dosage: 1.30 MG/M2, INTRAVENOUS
     Route: 042
     Dates: start: 20050808
  2. DOXIL [Suspect]
     Indication: MULTIPLE MYELOMA
     Dosage: 50.00 MG, INTRAVENOUS
     Route: 042
     Dates: start: 20050923, end: 20050926
  3. DOXIL [Suspect]
     Indication: MULTIPLE MYELOMA
     Dosage: 50.00 MG, INTRAVENOUS
     Route: 042
     Dates: start: 20050811
  4. CAPTOPRIL [Concomitant]
  5. LEVOTHYROXINE SODIUM [Concomitant]
  6. INDAPAMIDE [Concomitant]
  7. SOTALOL HCL [Concomitant]
  8. TIANEPTINE (TIANEPTINE) [Concomitant]
  9. KETOPROFEN [Concomitant]
  10. RANITIDINE [Concomitant]
  11. ERYTHROPOIETIN (ERYTHROPOIETIN) [Concomitant]
  12. VITAMIN B6 [Concomitant]

REACTIONS (16)
  - BLOOD CALCIUM DECREASED [None]
  - BLOOD MAGNESIUM DECREASED [None]
  - BLOOD POTASSIUM DECREASED [None]
  - CEREBRAL ISCHAEMIA [None]
  - COORDINATION ABNORMAL [None]
  - DIARRHOEA [None]
  - GENERAL PHYSICAL HEALTH DETERIORATION [None]
  - HAEMOGLOBIN DECREASED [None]
  - HYPERTENSION [None]
  - ILEUS [None]
  - PALMAR-PLANTAR ERYTHRODYSAESTHESIA SYNDROME [None]
  - PERIPHERAL SENSORY NEUROPATHY [None]
  - PLATELET COUNT DECREASED [None]
  - RED BLOOD CELL COUNT DECREASED [None]
  - VOMITING [None]
  - WHITE BLOOD CELL COUNT DECREASED [None]
